FAERS Safety Report 7717993-7 (Version None)
Quarter: 2011Q3

REPORT INFORMATION
  Report Type: 
  Country: None (occurrence: None)
  Receive Date: 20110830
  Receipt Date: 20110829
  Transmission Date: 20111222
  Serious: Yes (Hospitalization, Other)
  Sender: FDA-Public Use
  Company Number: US-PFIZER INC-2011200584

PATIENT
  Sex: Male
  Weight: 95.238 kg

DRUGS (4)
  1. XANAX [Suspect]
     Dosage: UNK
     Route: 048
  2. XANAX [Suspect]
     Dosage: UNK
     Route: 048
     Dates: end: 20110801
  3. XANAX [Suspect]
     Dosage: 1 MG, 3X/DAY
     Route: 048
     Dates: start: 20110828
  4. XANAX [Suspect]
     Indication: BIPOLAR DISORDER
     Dosage: 1 MG, DAILY
     Route: 048
     Dates: start: 20050101

REACTIONS (5)
  - HEADACHE [None]
  - DRUG DETOXIFICATION [None]
  - DYSPHEMIA [None]
  - FRUSTRATION [None]
  - VOCAL CORD DISORDER [None]
